FAERS Safety Report 5376530-5 (Version None)
Quarter: 2007Q3

REPORT INFORMATION
  Report Type: 
  Country: None (occurrence: None)
  Receive Date: 20070702
  Receipt Date: 20070626
  Transmission Date: 20080115
  Serious: Yes (Death)
  Sender: FDA-Public Use
  Company Number: GB-SHR-GB-2007-020786

PATIENT
  Sex: Male

DRUGS (4)
  1. CAMPATH [Suspect]
     Dosage: 30 MG X3D PRIOR TO ICE TX
     Dates: start: 20070101
  2. IFOSFAMIDE [Concomitant]
  3. CARBOPLATIN [Concomitant]
  4. ETOPOSIDE [Concomitant]

REACTIONS (1)
  - MALIGNANT NEOPLASM PROGRESSION [None]
